FAERS Safety Report 6032027-0 (Version None)
Quarter: 2009Q1

REPORT INFORMATION
  Report Type: 
  Country: None (occurrence: None)
  Receive Date: 20090108
  Receipt Date: 20090105
  Transmission Date: 20090719
  Serious: Yes (Death, Other)
  Sender: FDA-Public Use
  Company Number: PHHY2008IT31042

PATIENT
  Sex: Female

DRUGS (12)
  1. CLOZAPINE [Suspect]
     Dosage: LOW DOSAGE
     Dates: start: 20071101
  2. CLOZAPINE [Suspect]
     Dosage: 12.5 MG, UNK
     Route: 048
     Dates: start: 20080101
  3. COMTAN [Suspect]
     Indication: PARKINSON'S DISEASE
     Dosage: 800 MG, UNK
     Route: 048
     Dates: start: 20070201
  4. COMTAN [Suspect]
     Indication: DYSKINESIA
  5. COMTAN [Suspect]
     Indication: AGITATION
  6. COMTAN [Suspect]
     Indication: IRRITABILITY
  7. REQUIP [Suspect]
     Indication: PARKINSON'S DISEASE
     Dosage: 20 MG, UNK
     Route: 048
     Dates: start: 19980101
  8. REQUIP [Suspect]
     Dosage: 8 MG, UNK
     Route: 048
     Dates: start: 20070101
  9. NIFEDIPINE [Concomitant]
     Indication: HYPERTENSION
  10. CLONAZEPAM [Concomitant]
  11. MADOPAR [Concomitant]
     Indication: PARKINSON'S DISEASE
  12. SEROQUEL [Concomitant]
     Dosage: UNK
     Dates: start: 20070101

REACTIONS (27)
  - ACUTE MYOCARDIAL INFARCTION [None]
  - ACUTE PULMONARY OEDEMA [None]
  - ARTERIOSCLEROSIS [None]
  - ARTERIOSCLEROSIS CORONARY ARTERY [None]
  - BRAIN OEDEMA [None]
  - BRONCHITIS CHRONIC [None]
  - COLECTOMY [None]
  - DEMENTIA ALZHEIMER'S TYPE [None]
  - EMPHYSEMA [None]
  - GAIT DISTURBANCE [None]
  - HAEMORRHAGE [None]
  - HEPATIC STEATOSIS [None]
  - LIPIDOSIS [None]
  - MALAISE [None]
  - MANIA [None]
  - MYOCARDIAL FIBROSIS [None]
  - NO THERAPEUTIC RESPONSE [None]
  - PERICARDIAL EFFUSION [None]
  - POSTURE ABNORMAL [None]
  - PRESYNCOPE [None]
  - PSYCHOTIC DISORDER [None]
  - PULMONARY HAEMORRHAGE [None]
  - SILICOSIS [None]
  - SUBDURAL HAEMORRHAGE [None]
  - SUDDEN DEATH [None]
  - THYROID CANCER [None]
  - VENTRICULAR HYPERTROPHY [None]
